FAERS Safety Report 25035827 (Version 2)
Quarter: 2025Q3

REPORT INFORMATION
  Report Type: Spontaneous
  Country: CA (occurrence: CA)
  Receive Date: 20250304
  Receipt Date: 20250810
  Transmission Date: 20251020
  Serious: Yes (Other)
  Sender: ALEXION PHARMACEUTICALS
  Company Number: CA-HALEON-2229834

PATIENT
  Age: 41 Year
  Sex: Female

DRUGS (121)
  1. NEXIUM 24HR [Suspect]
     Active Substance: ESOMEPRAZOLE MAGNESIUM
     Route: 065
  2. ZESTRIL [Suspect]
     Active Substance: LISINOPRIL
     Route: 065
  3. ZESTRIL [Suspect]
     Active Substance: LISINOPRIL
     Dosage: 1 DOSAGE FORM, QD
  4. ZESTRIL [Suspect]
     Active Substance: LISINOPRIL
     Dosage: 1 DOSAGE FORM, QD
  5. PROPRANOLOL HYDROCHLORIDE [Suspect]
     Active Substance: PROPRANOLOL HYDROCHLORIDE
     Route: 065
  6. SCOPOLAMINE HYDROBROMIDE [Suspect]
     Active Substance: SCOPOLAMINE HYDROBROMIDE
     Indication: Migraine
     Route: 065
  7. SERTRALINE HYDROCHLORIDE [Suspect]
     Active Substance: SERTRALINE HYDROCHLORIDE
     Indication: Migraine
     Route: 065
  8. SERTRALINE HYDROCHLORIDE [Suspect]
     Active Substance: SERTRALINE HYDROCHLORIDE
     Route: 065
  9. SULFAMETHOXAZOLE\TRIMETHOPRIM [Concomitant]
     Active Substance: SULFAMETHOXAZOLE\TRIMETHOPRIM
     Indication: Product used for unknown indication
     Route: 065
  10. SUMATRIPTAN SUCCINATE [Suspect]
     Active Substance: SUMATRIPTAN SUCCINATE
     Indication: Migraine
     Route: 065
  11. SUMATRIPTAN SUCCINATE [Suspect]
     Active Substance: SUMATRIPTAN SUCCINATE
     Route: 065
  12. SUMATRIPTAN SUCCINATE [Suspect]
     Active Substance: SUMATRIPTAN SUCCINATE
     Route: 065
  13. TOPIRAMATE [Suspect]
     Active Substance: TOPIRAMATE
     Indication: Migraine
     Route: 065
  14. TOPIRAMATE [Suspect]
     Active Substance: TOPIRAMATE
     Route: 065
  15. TRAMADOL HYDROCHLORIDE [Suspect]
     Active Substance: TRAMADOL HYDROCHLORIDE
     Indication: Product used for unknown indication
     Route: 065
  16. TRIMETHOPRIM [Suspect]
     Active Substance: TRIMETHOPRIM
     Indication: Product used for unknown indication
     Route: 065
  17. VENLAFAXINE HYDROCHLORIDE [Suspect]
     Active Substance: VENLAFAXINE HYDROCHLORIDE
     Indication: Product used for unknown indication
     Route: 065
  18. VENLAFAXINE HYDROCHLORIDE [Suspect]
     Active Substance: VENLAFAXINE HYDROCHLORIDE
     Route: 065
  19. ZOLMITRIPTAN [Suspect]
     Active Substance: ZOLMITRIPTAN
     Indication: Product used for unknown indication
     Route: 065
  20. ZOPICLONE [Suspect]
     Active Substance: ZOPICLONE
     Indication: Migraine
     Route: 065
  21. ZOPICLONE [Suspect]
     Active Substance: ZOPICLONE
     Route: 065
  22. ZOPICLONE [Suspect]
     Active Substance: ZOPICLONE
     Route: 065
  23. ZOPICLONE [Suspect]
     Active Substance: ZOPICLONE
     Route: 065
  24. ZOPICLONE [Suspect]
     Active Substance: ZOPICLONE
     Route: 065
  25. ZOPICLONE [Suspect]
     Active Substance: ZOPICLONE
     Route: 065
  26. ZOPICLONE [Suspect]
     Active Substance: ZOPICLONE
     Route: 065
  27. ZOPICLONE [Suspect]
     Active Substance: ZOPICLONE
     Route: 065
  28. ZOPICLONE [Suspect]
     Active Substance: ZOPICLONE
     Route: 065
  29. ZOPICLONE [Suspect]
     Active Substance: ZOPICLONE
     Route: 065
  30. ZOPICLONE [Suspect]
     Active Substance: ZOPICLONE
     Route: 065
  31. ZOPICLONE [Suspect]
     Active Substance: ZOPICLONE
     Route: 065
  32. ZOPICLONE [Suspect]
     Active Substance: ZOPICLONE
     Route: 065
  33. ZOPICLONE [Suspect]
     Active Substance: ZOPICLONE
     Route: 065
  34. ZOPICLONE [Suspect]
     Active Substance: ZOPICLONE
     Route: 065
  35. ZOPICLONE [Suspect]
     Active Substance: ZOPICLONE
     Route: 065
  36. ZOPICLONE [Suspect]
     Active Substance: ZOPICLONE
     Route: 065
  37. ZOPICLONE [Suspect]
     Active Substance: ZOPICLONE
     Route: 065
  38. ACETAMINOPHEN [Suspect]
     Active Substance: ACETAMINOPHEN
     Indication: Product used for unknown indication
  39. AMOXICILLIN TRIHYDRATE [Suspect]
     Active Substance: AMOXICILLIN
     Indication: Product used for unknown indication
  40. PANTOPRAZOLE SODIUM [Concomitant]
     Active Substance: PANTOPRAZOLE SODIUM
     Indication: Product used for unknown indication
  41. AZITHROMYCIN [Suspect]
     Active Substance: AZITHROMYCIN
     Indication: Product used for unknown indication
  42. AZITHROMYCIN [Suspect]
     Active Substance: AZITHROMYCIN
     Indication: Migraine
  43. BOTULINUM TOXIN TYPE A [Suspect]
     Active Substance: BOTULINUM TOXIN TYPE A
     Indication: Product used for unknown indication
  44. CEFUROXIME SODIUM [Concomitant]
     Active Substance: CEFUROXIME SODIUM
     Indication: Product used for unknown indication
  45. CEPHALEXIN [Concomitant]
     Active Substance: CEPHALEXIN
     Indication: Product used for unknown indication
  46. CIPRO [Suspect]
     Active Substance: CIPROFLOXACIN HYDROCHLORIDE
     Indication: Migraine
  47. CLARITHROMYCIN [Suspect]
     Active Substance: CLARITHROMYCIN
     Indication: Product used for unknown indication
  48. CLOTRIMAZOLE [Suspect]
     Active Substance: CLOTRIMAZOLE
     Indication: Product used for unknown indication
  49. CODEINE [Suspect]
     Active Substance: CODEINE
     Indication: Migraine
  50. DANAZOL [Concomitant]
     Active Substance: DANAZOL
     Indication: Product used for unknown indication
  51. CYMBALTA [Concomitant]
     Active Substance: DULOXETINE HYDROCHLORIDE
     Indication: Product used for unknown indication
  52. DEXAMETHASONE [Suspect]
     Active Substance: DEXAMETHASONE
     Indication: Migraine
  53. DULOXETINE HYDROCHLORIDE [Suspect]
     Active Substance: DULOXETINE HYDROCHLORIDE
     Indication: Migraine
  54. ESCITALOPRAM OXALATE [Suspect]
     Active Substance: ESCITALOPRAM OXALATE
     Indication: Product used for unknown indication
  55. FERROUS FUMARATE [Concomitant]
     Active Substance: FERROUS FUMARATE
     Indication: Product used for unknown indication
  56. FLUOXETINE HYDROCHLORIDE [Concomitant]
     Active Substance: FLUOXETINE HYDROCHLORIDE
     Indication: Product used for unknown indication
  57. FLUTICASONE [Concomitant]
     Active Substance: FLUTICASONE
     Indication: Product used for unknown indication
  58. FROVATRIPTAN SUCCINATE [Concomitant]
     Active Substance: FROVATRIPTAN SUCCINATE
     Indication: Product used for unknown indication
  59. HYDROMORPHONE [Suspect]
     Active Substance: HYDROMORPHONE
     Indication: Migraine
  60. INDOMETHACIN [Suspect]
     Active Substance: INDOMETHACIN
     Indication: Migraine
  61. INDOMETHACIN [Suspect]
     Active Substance: INDOMETHACIN
  62. INDOMETHACIN [Suspect]
     Active Substance: INDOMETHACIN
  63. INDOMETHACIN [Suspect]
     Active Substance: INDOMETHACIN
  64. INDOMETHACIN [Suspect]
     Active Substance: INDOMETHACIN
  65. INDOMETHACIN [Suspect]
     Active Substance: INDOMETHACIN
  66. INDOMETHACIN [Suspect]
     Active Substance: INDOMETHACIN
  67. INDOMETHACIN [Suspect]
     Active Substance: INDOMETHACIN
  68. INDOMETHACIN [Suspect]
     Active Substance: INDOMETHACIN
  69. INDOMETHACIN [Suspect]
     Active Substance: INDOMETHACIN
  70. INDOMETHACIN [Suspect]
     Active Substance: INDOMETHACIN
  71. INDOMETHACIN [Suspect]
     Active Substance: INDOMETHACIN
  72. INDOMETHACIN [Suspect]
     Active Substance: INDOMETHACIN
  73. INDOMETHACIN [Suspect]
     Active Substance: INDOMETHACIN
  74. INDOMETHACIN [Suspect]
     Active Substance: INDOMETHACIN
  75. INDOMETHACIN [Suspect]
     Active Substance: INDOMETHACIN
  76. INDOMETHACIN [Suspect]
     Active Substance: INDOMETHACIN
  77. INDOMETHACIN [Suspect]
     Active Substance: INDOMETHACIN
  78. INDOMETHACIN [Suspect]
     Active Substance: INDOMETHACIN
  79. INDOMETHACIN [Suspect]
     Active Substance: INDOMETHACIN
  80. INDOMETHACIN [Suspect]
     Active Substance: INDOMETHACIN
  81. INDOMETHACIN [Suspect]
     Active Substance: INDOMETHACIN
  82. INDOMETHACIN [Suspect]
     Active Substance: INDOMETHACIN
  83. INDOMETHACIN [Suspect]
     Active Substance: INDOMETHACIN
  84. INDOMETHACIN [Suspect]
     Active Substance: INDOMETHACIN
  85. INDOMETHACIN [Suspect]
     Active Substance: INDOMETHACIN
     Route: 065
  86. LANSOPRAZOLE [Suspect]
     Active Substance: LANSOPRAZOLE
     Indication: Product used for unknown indication
  87. MACROBID [Concomitant]
     Active Substance: NITROFURANTOIN\NITROFURANTOIN MONOHYDRATE
     Indication: Product used for unknown indication
  88. POLYETHYLENE GLYCOL 3350 [Concomitant]
     Active Substance: POLYETHYLENE GLYCOL 3350
     Indication: Product used for unknown indication
  89. MAXALT [Suspect]
     Active Substance: RIZATRIPTAN BENZOATE
     Indication: Migraine
     Route: 065
  90. MAXALT [Suspect]
     Active Substance: RIZATRIPTAN BENZOATE
     Route: 065
  91. MAXALT [Suspect]
     Active Substance: RIZATRIPTAN BENZOATE
     Route: 065
  92. METOCLOPRAMIDE [Suspect]
     Active Substance: METOCLOPRAMIDE
     Indication: Migraine
     Route: 065
  93. METOCLOPRAMIDE [Concomitant]
     Active Substance: METOCLOPRAMIDE
     Indication: Product used for unknown indication
  94. METRONIDAZOLE [Concomitant]
     Active Substance: METRONIDAZOLE
     Indication: Product used for unknown indication
  95. MOMETASONE FUROATE [Suspect]
     Active Substance: MOMETASONE FUROATE
     Indication: Product used for unknown indication
  96. MORPHINE SULFATE [Concomitant]
     Active Substance: MORPHINE SULFATE
     Indication: Product used for unknown indication
  97. NAPROXEN [Concomitant]
     Active Substance: NAPROXEN
     Indication: Product used for unknown indication
  98. OSELTAMIVIR PHOSPHATE [Concomitant]
     Active Substance: OSELTAMIVIR PHOSPHATE
     Indication: Product used for unknown indication
  99. PREDNISONE [Suspect]
     Active Substance: PREDNISONE
     Indication: Product used for unknown indication
     Route: 065
  100. PREDNISONE [Suspect]
     Active Substance: PREDNISONE
     Route: 065
  101. RABEPRAZOLE [Suspect]
     Active Substance: RABEPRAZOLE
     Indication: Migraine
     Route: 065
  102. RABEPRAZOLE [Suspect]
     Active Substance: RABEPRAZOLE
     Route: 065
  103. RABEPRAZOLE [Suspect]
     Active Substance: RABEPRAZOLE
     Route: 065
  104. RABEPRAZOLE [Suspect]
     Active Substance: RABEPRAZOLE
     Route: 065
  105. RABEPRAZOLE [Suspect]
     Active Substance: RABEPRAZOLE
     Route: 065
  106. RABEPRAZOLE [Suspect]
     Active Substance: RABEPRAZOLE
     Route: 065
  107. RABEPRAZOLE [Suspect]
     Active Substance: RABEPRAZOLE
     Route: 065
  108. RABEPRAZOLE [Suspect]
     Active Substance: RABEPRAZOLE
     Route: 065
  109. RABEPRAZOLE [Suspect]
     Active Substance: RABEPRAZOLE
     Route: 065
  110. RABEPRAZOLE [Suspect]
     Active Substance: RABEPRAZOLE
     Route: 065
  111. RABEPRAZOLE [Suspect]
     Active Substance: RABEPRAZOLE
     Route: 065
  112. RABEPRAZOLE [Suspect]
     Active Substance: RABEPRAZOLE
     Route: 065
  113. RABEPRAZOLE [Suspect]
     Active Substance: RABEPRAZOLE
     Route: 065
  114. RABEPRAZOLE [Suspect]
     Active Substance: RABEPRAZOLE
     Route: 065
  115. RABEPRAZOLE [Suspect]
     Active Substance: RABEPRAZOLE
     Route: 065
  116. RABEPRAZOLE [Suspect]
     Active Substance: RABEPRAZOLE
     Route: 065
  117. RABEPRAZOLE [Suspect]
     Active Substance: RABEPRAZOLE
     Route: 065
  118. RABEPRAZOLE [Suspect]
     Active Substance: RABEPRAZOLE
     Route: 065
  119. RABEPRAZOLE [Suspect]
     Active Substance: RABEPRAZOLE
     Route: 065
  120. ALBUTEROL [Suspect]
     Active Substance: ALBUTEROL
     Indication: Product used for unknown indication
     Route: 065
  121. ALBUTEROL [Suspect]
     Active Substance: ALBUTEROL
     Route: 065

REACTIONS (9)
  - Angioedema [Unknown]
  - Swelling face [Unknown]
  - Dysphonia [Unknown]
  - Headache [Unknown]
  - Swollen tongue [Unknown]
  - Hypersensitivity [Unknown]
  - Drug intolerance [Unknown]
  - Off label use [Unknown]
  - Drug ineffective for unapproved indication [Unknown]
